FAERS Safety Report 9003082 (Version 1)
Quarter: 2013Q1

REPORT INFORMATION
  Report Type: Report from Study
  Country: JP (occurrence: JP)
  Receive Date: 20130108
  Receipt Date: 20130108
  Transmission Date: 20140127
  Serious: Yes (Death)
  Sender: FDA-Public Use
  Company Number: JP-ROCHE-GNE323723

PATIENT
  Age: 78 Year
  Sex: Male

DRUGS (4)
  1. GRTPA [Suspect]
     Indication: EMBOLIC STROKE
     Route: 042
     Dates: start: 20110824, end: 20110824
  2. RADICUT [Concomitant]
     Route: 041
     Dates: start: 20110824, end: 20110825
  3. GLYCEOL [Concomitant]
  4. WARFARIN POTASSIUM [Concomitant]

REACTIONS (1)
  - Brain oedema [Fatal]
